FAERS Safety Report 4526059-9 (Version None)
Quarter: 2004Q4

REPORT INFORMATION
  Report Type: 
  Country: None (occurrence: None)
  Receive Date: 20041213
  Receipt Date: 20041213
  Transmission Date: 20050328
  Serious: Yes (Disabling)
  Sender: FDA-Public Use
  Company Number: None

PATIENT
  Age: 33 Year
  Sex: Male
  Weight: 99.7913 kg

DRUGS (3)
  1. VIOXX [Suspect]
     Indication: MENIERE'S DISEASE
     Dosage: 25MG  DAILY ORAL
     Route: 048
     Dates: start: 20030501, end: 20031231
  2. VIOXX [Suspect]
     Indication: TINNITUS
     Dosage: 25MG  DAILY ORAL
     Route: 048
     Dates: start: 20030501, end: 20031231
  3. VIOXX [Suspect]
     Indication: VERTIGO
     Dosage: 25MG  DAILY ORAL
     Route: 048
     Dates: start: 20030501, end: 20031231

REACTIONS (5)
  - DIZZINESS [None]
  - HYPERSENSITIVITY [None]
  - IMPAIRED DRIVING ABILITY [None]
  - TINNITUS [None]
  - VERTIGO [None]
